FAERS Safety Report 22636260 (Version 1)
Quarter: 2023Q2

REPORT INFORMATION
  Report Type: Spontaneous
  Country: NL (occurrence: NL)
  Receive Date: 20230623
  Receipt Date: 20230623
  Transmission Date: 20230721
  Serious: Yes (Hospitalization)
  Sender: FDA-Public Use
  Company Number: None

PATIENT
  Sex: Female
  Weight: 90 kg

DRUGS (4)
  1. METFORMIN HYDROCHLORIDE [Suspect]
     Active Substance: METFORMIN HYDROCHLORIDE
     Indication: Type 2 diabetes mellitus
     Dosage: 1000 MILLIGRAM DAILY; 2D1T  , BRAND NAME NOT SPECIFIED
     Dates: start: 20211117
  2. GLICLAZIDE [Suspect]
     Active Substance: GLICLAZIDE
     Indication: Type 2 diabetes mellitus
     Dosage: 60 MILLIGRAM DAILY; 1D2T  , TABLET MGA/ BRAND NAME NOT SPECIFIED
     Dates: start: 20220308, end: 20230404
  3. AMLODIPINE BESYLATE\OLMESARTAN MEDOXOMIL [Suspect]
     Active Substance: AMLODIPINE BESYLATE\OLMESARTAN MEDOXOMIL
     Indication: Hypertension
     Dosage: 1 DOSAGE FORMS DAILY; 1D1T  , 40/10MG / BRAND NAME NOT SPECIFIED
     Dates: start: 20220617
  4. SEMAGLUTIDE [Suspect]
     Active Substance: SEMAGLUTIDE
     Indication: Type 2 diabetes mellitus
     Dosage: 7 MILLIGRAM DAILY; 1D1T  , BRAND NAME NOT SPECIFIED
     Dates: start: 20220617, end: 20230404

REACTIONS (2)
  - Ketoacidosis [Recovering/Resolving]
  - Hyperglycaemia [Recovering/Resolving]
